FAERS Safety Report 25766839 (Version 1)
Quarter: 2025Q3

REPORT INFORMATION
  Report Type: Spontaneous
  Country: US (occurrence: US)
  Receive Date: 20250905
  Receipt Date: 20250905
  Transmission Date: 20251021
  Serious: No
  Sender: SANDOZ
  Company Number: US-002147023-NVSC2023US148817

PATIENT
  Sex: Male
  Weight: 129.27 kg

DRUGS (5)
  1. PENICILLIN G [Suspect]
     Active Substance: PENICILLIN G
     Indication: Psoriasis
     Route: 065
  2. PANTOPRAZOLE [Suspect]
     Active Substance: PANTOPRAZOLE
     Indication: Psoriasis
     Route: 065
  3. PENICILLIN G SODIUM [Suspect]
     Active Substance: PENICILLIN G SODIUM
     Indication: Psoriasis
     Route: 065
  4. ROPINIROLE [Suspect]
     Active Substance: ROPINIROLE
     Indication: Psoriasis
     Route: 065
  5. TRIAMCINOLONE [Suspect]
     Active Substance: TRIAMCINOLONE
     Indication: Psoriasis
     Route: 065

REACTIONS (3)
  - Rash macular [Unknown]
  - Psoriasis [Unknown]
  - Product use in unapproved indication [Unknown]
